FAERS Safety Report 10936645 (Version 1)
Quarter: 2015Q1

REPORT INFORMATION
  Report Type: Spontaneous
  Country: US (occurrence: None)
  Receive Date: 20150129
  Receipt Date: 20150129
  Transmission Date: 20150721
  Serious: No
  Sender: FDA-Public Use
  Company Number: A-NJ2014-106146

PATIENT
  Age: 78 Year
  Sex: Male
  Weight: 79.4 kg

DRUGS (9)
  1. OPSUMIT [Suspect]
     Active Substance: MACITENTAN
     Indication: PULMONARY HYPERTENSION
     Route: 048
     Dates: start: 20140919
  2. LASIX [Concomitant]
     Active Substance: FUROSEMIDE
  3. CRESTOR [Concomitant]
     Active Substance: ROSUVASTATIN CALCIUM
  4. WARFARIN (WARFARIN POTASSIUM) [Concomitant]
  5. METOPROLOL (METOPROLOL FUMARATE) [Concomitant]
  6. ADCIRCA [Concomitant]
     Active Substance: TADALAFIL
  7. FOLIC ACID. [Concomitant]
     Active Substance: FOLIC ACID
  8. KLOR-CON [Concomitant]
     Active Substance: POTASSIUM CHLORIDE
  9. DIGOXIN (BETA-ACETYLDIGOXIN) [Concomitant]
     Active Substance: .BETA.-ACETYLDIGOXIN

REACTIONS (10)
  - Insomnia [None]
  - Dyspnoea [None]
  - Fatigue [None]
  - Tenderness [None]
  - Dyspnoea exertional [None]
  - Feeling abnormal [None]
  - Malaise [None]
  - Fluid retention [None]
  - Palpitations [None]
  - Weight increased [None]

NARRATIVE: CASE EVENT DATE: 20140919
